FAERS Safety Report 8324911-X (Version None)
Quarter: 2012Q2

REPORT INFORMATION
  Report Type: 
  Country: None (occurrence: None)
  Receive Date: 20120501
  Receipt Date: 20120425
  Transmission Date: 20120825
  Serious: Yes (Other)
  Sender: FDA-Public Use
  Company Number: US-PFIZER INC-2012102826

PATIENT
  Sex: Female
  Weight: 81.633 kg

DRUGS (1)
  1. DETROL LA [Suspect]
     Indication: HYPERTONIC BLADDER
     Dosage: 4 MG, AS NEEDED
     Route: 048

REACTIONS (3)
  - SPEECH DISORDER [None]
  - HEMIPLEGIA [None]
  - CEREBROVASCULAR ACCIDENT [None]
